FAERS Safety Report 5368291-0 (Version None)
Quarter: 2007Q2

REPORT INFORMATION
  Report Type: 
  Country: None (occurrence: None)
  Receive Date: 20070620
  Receipt Date: 20070614
  Transmission Date: 20071010
  Serious: Yes (Hospitalization)
  Sender: FDA-Public Use
  Company Number: 200706IM000225

PATIENT
  Age: 79 Year
  Sex: Male

DRUGS (1)
  1. ACTIMMUNE [Suspect]
     Indication: IDIOPATHIC PULMONARY FIBROSIS
     Dosage: SUBCUTANEOUS
     Route: 058
     Dates: start: 20070601, end: 20070601

REACTIONS (5)
  - DYSPNOEA [None]
  - INFLUENZA LIKE ILLNESS [None]
  - PLEURAL EFFUSION [None]
  - PLEURAL FIBROSIS [None]
  - PYREXIA [None]
